FAERS Safety Report 16027754 (Version 1)
Quarter: 2019Q1

REPORT INFORMATION
  Report Type: Spontaneous
  Country: US (occurrence: US)
  Receive Date: 20190304
  Receipt Date: 20190304
  Transmission Date: 20190418
  Serious: No
  Sender: FDA-Public Use
  Company Number: US-IMPAX LABORATORIES, LLC-2018-IPXL-00860

PATIENT
  Age: 74 Year
  Sex: Male
  Weight: 50 kg

DRUGS (8)
  1. CALCIUM [Concomitant]
     Active Substance: CALCIUM
     Indication: MINERAL SUPPLEMENTATION
     Dosage: 1 TABLET, QD
     Route: 048
     Dates: start: 2000
  2. CURCUMAX PRO [Concomitant]
     Indication: SUPPLEMENTATION THERAPY
     Dosage: 1 TABLET, QD
     Route: 048
     Dates: start: 2016, end: 201804
  3. LITHIUM. [Concomitant]
     Active Substance: LITHIUM
     Indication: SUPPLEMENTATION THERAPY
     Dosage: 20 MILLIGRAM, QD
     Route: 048
     Dates: start: 2012, end: 2017
  4. CHOLINE [Concomitant]
     Active Substance: CHOLINE
     Indication: SUPPLEMENTATION THERAPY
     Dosage: 250 MILLIGRAM, QD
     Route: 048
     Dates: start: 2012, end: 2018
  5. RYTARY [Suspect]
     Active Substance: CARBIDOPA\LEVODOPA
     Indication: PARKINSON^S DISEASE
     Dosage: 48.75/195 MG, TWO CAPSULES, THREE TIMES DAILY
     Route: 048
  6. RYTARY [Suspect]
     Active Substance: CARBIDOPA\LEVODOPA
     Dosage: 48.75/195 MG, TWO CAPSULES, FOUR TIMES DAILY
     Route: 048
  7. COENZYME Q10 [Concomitant]
     Active Substance: UBIDECARENONE
     Indication: SUPPLEMENTATION THERAPY
     Dosage: 1 CAPSULE, QD
     Route: 048
     Dates: start: 2016
  8. FISH OIL [Concomitant]
     Active Substance: FISH OIL
     Indication: SUPPLEMENTATION THERAPY
     Dosage: 1 CAPSULE, QD
     Route: 048
     Dates: start: 1999

REACTIONS (12)
  - Eye disorder [Unknown]
  - Stress [Unknown]
  - General physical condition abnormal [Unknown]
  - Treatment noncompliance [Unknown]
  - Influenza like illness [Not Recovered/Not Resolved]
  - Discomfort [Not Recovered/Not Resolved]
  - Gait disturbance [Unknown]
  - Mental impairment [Unknown]
  - Pain [Not Recovered/Not Resolved]
  - Tremor [Not Recovered/Not Resolved]
  - Muscle spasms [Not Recovered/Not Resolved]
  - Weight decreased [Not Recovered/Not Resolved]

NARRATIVE: CASE EVENT DATE: 201809
